FAERS Safety Report 6189936-1 (Version None)
Quarter: 2009Q2

REPORT INFORMATION
  Report Type: 
  Country: None (occurrence: None)
  Receive Date: 20090513
  Receipt Date: 20090513
  Transmission Date: 20091009
  Serious: Yes (Life-Threatening, Hospitalization, Disabling, Other)
  Sender: FDA-Public Use
  Company Number: None

PATIENT
  Sex: Female

DRUGS (1)
  1. LEVAQUIN [Suspect]
     Indication: INFECTION
     Dosage: 750 MG ONCE DAILY PO
     Route: 048
     Dates: start: 20090311, end: 20090320

REACTIONS (3)
  - ABASIA [None]
  - ARTHRALGIA [None]
  - THROMBOSIS [None]
